FAERS Safety Report 7480750-3 (Version None)
Quarter: 2011Q2

REPORT INFORMATION
  Report Type: 
  Country: None (occurrence: None)
  Receive Date: 20110506
  Receipt Date: 20110426
  Transmission Date: 20111010
  Serious: Yes (Hospitalization)
  Sender: FDA-Public Use
  Company Number: PHHY2010TW55762

PATIENT
  Sex: Male

DRUGS (2)
  1. VISUDYNE [Suspect]
     Indication: AGE-RELATED MACULAR DEGENERATION
     Dates: start: 20100803, end: 20100803
  2. LUCENTIS [Suspect]
     Indication: AGE-RELATED MACULAR DEGENERATION
     Dates: start: 20100804, end: 20100804

REACTIONS (1)
  - CEREBROVASCULAR ACCIDENT [None]
